FAERS Safety Report 5817448-0 (Version None)
Quarter: 2008Q3

REPORT INFORMATION
  Report Type: 
  Country: None (occurrence: None)
  Receive Date: 20080722
  Receipt Date: 20071010
  Transmission Date: 20090109
  Serious: No
  Sender: FDA-Public Use
  Company Number: US-BAYER-US-2007-038511

PATIENT
  Age: 36 Year
  Sex: Female
  Weight: 73 kg

DRUGS (3)
  1. MIRENA [Suspect]
     Indication: CONTRACEPTION
     Route: 015
     Dates: start: 20070925, end: 20071009
  2. LABETALOL HCL [Concomitant]
     Dosage: UNIT DOSE: 200 MG
     Route: 048
  3. VITAMIN TAB [Concomitant]

REACTIONS (1)
  - IUCD COMPLICATION [None]
